FAERS Safety Report 7930845-2 (Version None)
Quarter: 2011Q4

REPORT INFORMATION
  Report Type: 
  Country: None (occurrence: None)
  Receive Date: 20111117
  Receipt Date: 20111117
  Transmission Date: 20120403
  Serious: Yes (Hospitalization)
  Sender: FDA-Public Use
  Company Number: None

PATIENT
  Sex: Male
  Weight: 8.3 kg

DRUGS (2)
  1. ETOPOSIDE [Suspect]
     Dosage: 100.5 MG
  2. CARBOPLATIN [Suspect]
     Dosage: 156 MG

REACTIONS (18)
  - SWELLING FACE [None]
  - SERRATIA TEST POSITIVE [None]
  - ALTERED STATE OF CONSCIOUSNESS [None]
  - URINE OUTPUT DECREASED [None]
  - HYPOXIA [None]
  - EYELID OEDEMA [None]
  - PLEURAL EFFUSION [None]
  - PNEUMOTHORAX [None]
  - PYREXIA [None]
  - ANTIBIOTIC RESISTANT STAPHYLOCOCCUS TEST POSITIVE [None]
  - DISSEMINATED INTRAVASCULAR COAGULATION [None]
  - RESPIRATORY DISTRESS [None]
  - SEPSIS [None]
  - HYPOTENSION [None]
  - CARDIAC ARREST [None]
  - DEHYDRATION [None]
  - HEPATIC FAILURE [None]
  - VOMITING [None]
